FAERS Safety Report 20592418 (Version 1)
Quarter: 2022Q1

REPORT INFORMATION
  Report Type: Spontaneous
  Country: US (occurrence: None)
  Receive Date: 20220314
  Receipt Date: 20220314
  Transmission Date: 20220423
  Serious: No
  Sender: FDA-Public Use
  Company Number: US-ROCHE-2844238

PATIENT
  Sex: Female

DRUGS (2)
  1. XOLAIR [Suspect]
     Active Substance: OMALIZUMAB
     Indication: Idiopathic urticaria
     Route: 065
  2. XOLAIR [Suspect]
     Active Substance: OMALIZUMAB
     Route: 065

REACTIONS (3)
  - Drug ineffective [Unknown]
  - Off label use [Unknown]
  - No adverse event [Unknown]
